FAERS Safety Report 7333496-6 (Version None)
Quarter: 2011Q1

REPORT INFORMATION
  Report Type: 
  Country: None (occurrence: None)
  Receive Date: 20110304
  Receipt Date: 20110302
  Transmission Date: 20110831
  Serious: Yes (Other)
  Sender: FDA-Public Use
  Company Number: AU-PFIZER INC-AU-WYE-G06653610

PATIENT
  Age: 46 Year
  Sex: Female
  Weight: 53.7 kg

DRUGS (1)
  1. PRISTIQ [Suspect]
     Indication: DEPRESSION
     Dosage: 50MG DAILY
     Route: 048
     Dates: start: 20100419, end: 20100915

REACTIONS (7)
  - JAUNDICE [None]
  - URTICARIA [None]
  - NAUSEA [None]
  - DECREASED APPETITE [None]
  - BLOOD CHOLESTEROL INCREASED [None]
  - HEPATITIS [None]
  - CONTUSION [None]
